FAERS Safety Report 9475781 (Version 2)
Quarter: 2013Q3

REPORT INFORMATION
  Report Type: Spontaneous
  Country: US (occurrence: US)
  Receive Date: 20130826
  Receipt Date: 20130916
  Transmission Date: 20140515
  Serious: No
  Sender: FDA-Public Use
  Company Number: US-PFIZER INC-2013241207

PATIENT
  Sex: Female

DRUGS (3)
  1. FLAGYL [Suspect]
     Dosage: UNK
     Dates: end: 2009
  2. BENICAR [Suspect]
     Dosage: UNK
     Dates: end: 2009
  3. HYDROCHLOROTHIAZIDE [Suspect]
     Dosage: UNK
     Dates: end: 2009

REACTIONS (1)
  - Drug hypersensitivity [Recovered/Resolved]
